FAERS Safety Report 8413175-4 (Version None)
Quarter: 2012Q2

REPORT INFORMATION
  Report Type: 
  Country: None (occurrence: None)
  Receive Date: 20120605
  Receipt Date: 20120531
  Transmission Date: 20120825
  Serious: No
  Sender: FDA-Public Use
  Company Number: US-AMGEN-USASP2012034254

PATIENT
  Age: 48 Year
  Sex: Female

DRUGS (3)
  1. TREXALL [Concomitant]
     Dosage: 1 MG, UNK
     Dates: start: 20120501
  2. ENBREL [Suspect]
     Indication: RHEUMATOID ARTHRITIS
     Dosage: 50 MG, QWK
     Dates: start: 20110801
  3. PLAQUENIL [Concomitant]
     Dosage: 2 MG, UNK

REACTIONS (4)
  - RHEUMATOID ARTHRITIS [None]
  - ALBUMINURIA [None]
  - TOOTHACHE [None]
  - SENSITIVITY OF TEETH [None]
